FAERS Safety Report 4298936-8 (Version None)
Quarter: 2004Q1

REPORT INFORMATION
  Report Type: 
  Country: None (occurrence: None)
  Receive Date: 20040217
  Receipt Date: 20040211
  Transmission Date: 20041129
  Serious: Yes (Hospitalization, Disabling)
  Sender: FDA-Public Use
  Company Number: TOR 2003-0035

PATIENT
  Age: 56 Year
  Sex: Female

DRUGS (10)
  1. FARESTON [Suspect]
     Indication: BREAST CANCER
     Dosage: 40 MG ORAL
     Route: 048
     Dates: start: 20030904, end: 20030924
  2. UFT [Suspect]
     Indication: BREAST CANCER
     Dosage: 3 CAPS DAY ORAL
     Route: 048
     Dates: start: 20030925, end: 20031001
  3. NOLVADEX [Suspect]
     Indication: BREAST CANCER
     Dosage: 20 MG ORAL
     Route: 048
     Dates: start: 20030925, end: 20031001
  4. FURTULON [Suspect]
     Indication: BREAST CANCER
     Dosage: 600 MG ORAL
     Route: 048
     Dates: start: 20030901, end: 20030925
  5. FURTULON [Suspect]
     Indication: BREAST CANCER
     Dosage: 600 MG ORAL
     Route: 048
     Dates: start: 20030806
  6. CRAVIT [Suspect]
     Indication: CYSTITIS
     Dosage: 300 MG ORAL
     Route: 048
     Dates: start: 20030911, end: 20030915
  7. REBAMIPIDE [Concomitant]
  8. CEFDINIR [Concomitant]
  9. LOXOPROFEN SODIUM [Concomitant]
  10. CEFMETAZOLE SODIUM [Concomitant]

REACTIONS (5)
  - CYSTITIS [None]
  - DYSPNOEA EXERTIONAL [None]
  - INTERSTITIAL LUNG DISEASE [None]
  - RASH [None]
  - WOUND INFECTION [None]
